FAERS Safety Report 5534025-X (Version None)
Quarter: 2007Q4

REPORT INFORMATION
  Report Type: 
  Country: None (occurrence: None)
  Receive Date: 20071205
  Receipt Date: 20071130
  Transmission Date: 20080405
  Serious: Yes (Hospitalization)
  Sender: FDA-Public Use
  Company Number: PHNU2007DE03994

PATIENT
  Sex: Female

DRUGS (3)
  1. THEOPHYLLINE [Concomitant]
     Indication: BRONCHITIS
  2. ACETYLCYSTEINE [Concomitant]
     Indication: BRONCHITIS
  3. FEMARA [Suspect]
     Indication: BREAST CANCER
     Route: 048
     Dates: start: 20060201

REACTIONS (4)
  - ACUTE HEPATIC FAILURE [None]
  - BLOOD CREATININE INCREASED [None]
  - RENAL FAILURE ACUTE [None]
  - TRANSAMINASES INCREASED [None]
